FAERS Safety Report 9972684 (Version 6)
Quarter: 2016Q2

REPORT INFORMATION
  Report Type: Spontaneous
  Country: US (occurrence: US)
  Receive Date: 20140306
  Receipt Date: 20160408
  Transmission Date: 20160815
  Serious: Yes (Disabling, Other)
  Sender: FDA-Public Use
  Company Number: US-MERCK-1205USA02341

PATIENT
  Sex: Male

DRUGS (1)
  1. PROPECIA [Suspect]
     Active Substance: FINASTERIDE
     Indication: ANDROGENETIC ALOPECIA
     Dosage: 1 MG, QD
     Route: 048
     Dates: start: 200502, end: 200606

REACTIONS (30)
  - Benign breast lump removal [Unknown]
  - Patellofemoral pain syndrome [Unknown]
  - Gastritis [Unknown]
  - Depression [Unknown]
  - Sleep apnoea syndrome [Unknown]
  - Sinus disorder [Unknown]
  - Sinusitis [Unknown]
  - Alcohol abuse [Unknown]
  - Asthma [Unknown]
  - Pain [Unknown]
  - Seborrhoeic dermatitis [Unknown]
  - Abdominal injury [Not Recovered/Not Resolved]
  - Generalised anxiety disorder [Unknown]
  - Fibromyalgia [Unknown]
  - Sedation [Unknown]
  - Panic attack [Unknown]
  - Epicondylitis [Unknown]
  - Sinus operation [Unknown]
  - Erectile dysfunction [Not Recovered/Not Resolved]
  - Sexual dysfunction [Not Recovered/Not Resolved]
  - Cholecystectomy [Unknown]
  - Hypertension [Unknown]
  - Obsessive-compulsive disorder [Unknown]
  - Tinea versicolour [Unknown]
  - Benign breast neoplasm [Unknown]
  - Gastrooesophageal reflux disease [Unknown]
  - Chronic obstructive pulmonary disease [Unknown]
  - Dependence [Unknown]
  - Adenotonsillectomy [Unknown]
  - Somatic symptom disorder [Unknown]

NARRATIVE: CASE EVENT DATE: 200502
